FAERS Safety Report 10369849 (Version 1)
Quarter: 2014Q3

REPORT INFORMATION
  Report Type: Report from Study
  Country: SK (occurrence: SK)
  Receive Date: 20140808
  Receipt Date: 20140808
  Transmission Date: 20150326
  Serious: Yes (Death, Other)
  Sender: FDA-Public Use
  Company Number: SK-ROCHE-1442922

PATIENT

DRUGS (1)
  1. BEVACIZUMAB [Suspect]
     Active Substance: BEVACIZUMAB
     Indication: LUNG NEOPLASM MALIGNANT
     Route: 065

REACTIONS (10)
  - Leukopenia [Unknown]
  - Thrombocytopenia [Unknown]
  - Ischaemic stroke [Fatal]
  - Neutropenia [Unknown]
  - Myocardial ischaemia [Unknown]
  - Gastrointestinal perforation [Unknown]
  - Arterial thrombosis [Unknown]
  - Anaemia [Unknown]
  - Hypertension [Unknown]
  - Pneumothorax [Unknown]
